FAERS Safety Report 9245742 (Version 1)
Quarter: 2013Q2

REPORT INFORMATION
  Report Type: Spontaneous
  Country: AU (occurrence: AU)
  Receive Date: 20130422
  Receipt Date: 20130422
  Transmission Date: 20140414
  Serious: Yes (Other)
  Sender: FDA-Public Use
  Company Number: AU-PFIZER INC-2013120907

PATIENT
  Age: 39 Year
  Sex: Male

DRUGS (4)
  1. VARENICLINE TARTRATE [Suspect]
     Indication: SMOKING CESSATION THERAPY
     Dosage: UNK
     Route: 048
     Dates: start: 20121031
  2. OLANZAPINE [Suspect]
     Dosage: 2.5 MG, 1X/DAY
  3. VENLAFAXINE HCL [Suspect]
     Dosage: 75 MG, UNK
  4. LITHICARB [Suspect]
     Dosage: 1.3 G, 1X/DAY
     Route: 048

REACTIONS (4)
  - Haematemesis [Not Recovered/Not Resolved]
  - Nausea [Not Recovered/Not Resolved]
  - Abdominal pain upper [Not Recovered/Not Resolved]
  - Malaise [Not Recovered/Not Resolved]
